FAERS Safety Report 4866314-6 (Version None)
Quarter: 2005Q4

REPORT INFORMATION
  Report Type: 
  Country: None (occurrence: None)
  Receive Date: 20051227
  Receipt Date: 20051215
  Transmission Date: 20060501
  Serious: Yes (Other)
  Sender: FDA-Public Use
  Company Number: FR-SANOFI-SYNTHELABO-A02200503372

PATIENT
  Age: 31 Year
  Sex: Female
  Weight: 55 kg

DRUGS (3)
  1. STILNOX [Suspect]
     Indication: INSOMNIA
     Route: 048
     Dates: start: 20051115, end: 20051121
  2. AERIUS [Suspect]
     Indication: URTICARIA GENERALISED
     Route: 048
     Dates: start: 20051115, end: 20051116
  3. PROZAC [Suspect]
     Indication: DEPRESSION
     Route: 048
     Dates: start: 20051115, end: 20051121

REACTIONS (4)
  - ANGIONEUROTIC OEDEMA [None]
  - ASTHMA [None]
  - CONDITION AGGRAVATED [None]
  - DRUG INEFFECTIVE [None]
